FAERS Safety Report 4762615-0 (Version None)
Quarter: 2005Q3

REPORT INFORMATION
  Report Type: 
  Country: None (occurrence: None)
  Receive Date: 20050907
  Receipt Date: 20050711
  Transmission Date: 20060218
  Serious: Yes (Life-Threatening, Hospitalization, Disabling)
  Sender: FDA-Public Use
  Company Number: BE-GLAXOSMITHKLINE-B0387549A

PATIENT
  Age: 7 Year
  Sex: Female
  Weight: 18 kg

DRUGS (4)
  1. MALARONE [Suspect]
     Indication: MALARIA PROPHYLAXIS
     Route: 065
     Dates: start: 20050708
  2. VALIUM [Suspect]
     Route: 050
  3. DORMICUM [Suspect]
     Dosage: 1.8MG UNKNOWN
     Route: 042
  4. TEGRETOL [Concomitant]
     Indication: EPILEPSY

REACTIONS (13)
  - AGITATION [None]
  - CONVULSION [None]
  - COORDINATION ABNORMAL [None]
  - CRYING [None]
  - DEPRESSED LEVEL OF CONSCIOUSNESS [None]
  - DYSPNOEA [None]
  - EPILEPSY [None]
  - HYPOTONIA [None]
  - OXYGEN SATURATION DECREASED [None]
  - PARADOXICAL DRUG REACTION [None]
  - PYREXIA [None]
  - SOMNOLENCE [None]
  - VASOSPASM [None]
